FAERS Safety Report 9814630 (Version 2)
Quarter: 2014Q1

REPORT INFORMATION
  Report Type: Spontaneous
  Country: US (occurrence: US)
  Receive Date: 20140113
  Receipt Date: 20140113
  Transmission Date: 20141002
  Serious: Yes (Hospitalization, Disabling, Other)
  Sender: FDA-Public Use
  Company Number: US-ACORDA-ACO_31097_2012

PATIENT
  Age: 85 Year
  Sex: Female
  Weight: 63.49 kg

DRUGS (6)
  1. AMPYRA [Suspect]
     Indication: BALANCE DISORDER
     Dosage: 10 MG, TOOK 3 TIMES A WEEK
     Route: 048
     Dates: start: 201106, end: 201107
  2. AMPYRA [Suspect]
     Dosage: UNK
  3. ANTIHYPERTENSIVES [Concomitant]
     Indication: PRODUCT USED FOR UNKNOWN INDICATION
  4. ALL OTHER THERAPEUTIC PRODUCTS [Concomitant]
     Indication: PRODUCT USED FOR UNKNOWN INDICATION
  5. ANTIDEPRESSANTS [Concomitant]
     Indication: DEPRESSION
  6. ALL OTHER THERAPEUTIC PRODUCTS [Concomitant]
     Indication: BLOOD CHOLESTEROL ABNORMAL

REACTIONS (15)
  - Convulsion [Recovered/Resolved]
  - Cerebrovascular accident [Unknown]
  - Amnesia [Recovered/Resolved]
  - Confusional state [Recovered/Resolved]
  - Delusional disorder, unspecified type [Not Recovered/Not Resolved]
  - Abasia [Recovered/Resolved]
  - Urinary tract infection [Recovered/Resolved]
  - Pollakiuria [Unknown]
  - Depression [Unknown]
  - Tremor [Unknown]
  - Panic disorder [Unknown]
  - Agitation [Unknown]
  - Walking aid user [Not Recovered/Not Resolved]
  - Disorientation [Unknown]
  - Drug ineffective [None]
